FAERS Safety Report 6769537-4 (Version None)
Quarter: 2010Q2

REPORT INFORMATION
  Report Type: 
  Country: None (occurrence: None)
  Receive Date: 20100615
  Receipt Date: 20100601
  Transmission Date: 20101027
  Serious: Yes (Hospitalization, Other)
  Sender: FDA-Public Use
  Company Number: PHHY2010BR35821

PATIENT
  Age: 57 Year
  Sex: Female
  Weight: 79 kg

DRUGS (4)
  1. TEGRETOL-XR [Suspect]
     Indication: CONVULSION
     Dosage: 1 DF, TID
     Route: 048
  2. TEGRETOL-XR [Suspect]
     Dosage: 1.5 DF, TID
     Route: 048
  3. TEGRETOL-XR [Suspect]
     Dosage: 1.5 DF, TID
     Route: 048
     Dates: start: 20100501
  4. LEPONEX ^WANDER^ [Concomitant]
     Indication: CONVULSION
     Dosage: 1 DF, QHS
     Route: 048
     Dates: start: 20060101

REACTIONS (7)
  - BRAIN HYPOXIA [None]
  - BRAIN OEDEMA [None]
  - CONVULSION [None]
  - FALL [None]
  - HAEMORRHAGE INTRACRANIAL [None]
  - HAND FRACTURE [None]
  - SKULL FRACTURE [None]
